FAERS Safety Report 10235106 (Version 4)
Quarter: 2014Q3

REPORT INFORMATION
  Report Type: Spontaneous
  Country: US (occurrence: None)
  Receive Date: 20140611
  Receipt Date: 20140908
  Transmission Date: 20150326
  Serious: Yes (Other)
  Sender: FDA-Public Use
  Company Number: ADR-2014-00987

PATIENT
  Age: 12 Year
  Sex: Male

DRUGS (1)
  1. LIORESAL [Suspect]
     Active Substance: BACLOFEN
     Indication: MUSCLE SPASTICITY
     Dosage: 619.6MCG/DAY

REACTIONS (6)
  - Irritability [None]
  - Clonus [None]
  - Posture abnormal [None]
  - Procedural complication [None]
  - Muscle spasticity [None]
  - Retching [None]

NARRATIVE: CASE EVENT DATE: 20091015
